FAERS Safety Report 6323739-X (Version None)
Quarter: 2009Q3

REPORT INFORMATION
  Report Type: 
  Country: None (occurrence: None)
  Receive Date: 20090818
  Receipt Date: 20090401
  Transmission Date: 20100115
  Serious: Yes (Hospitalization)
  Sender: FDA-Public Use
  Company Number: MEDI-0008263

PATIENT
  Age: 23 Month
  Sex: Male
  Weight: 12.6 kg

DRUGS (6)
  1. SYNAGIS [Suspect]
     Indication: RESPIRATORY SYNCYTIAL VIRUS INFECTION
     Dosage: SEE IMAGE
     Route: 030
     Dates: start: 20081205, end: 20090209
  2. SYNAGIS [Suspect]
     Indication: RESPIRATORY SYNCYTIAL VIRUS INFECTION
     Dosage: SEE IMAGE
     Route: 030
     Dates: start: 20081205
  3. SYNAGIS [Suspect]
     Indication: RESPIRATORY SYNCYTIAL VIRUS INFECTION
     Dosage: SEE IMAGE
     Route: 030
     Dates: start: 20090101
  4. SYNAGIS [Suspect]
     Indication: RESPIRATORY SYNCYTIAL VIRUS INFECTION
     Dosage: SEE IMAGE
     Route: 030
     Dates: start: 20090403
  5. SYNAGIS [Suspect]
  6. ALBUTEROL [Concomitant]

REACTIONS (1)
  - DYSPNOEA [None]
